FAERS Safety Report 12649481 (Version 10)
Quarter: 2021Q4

REPORT INFORMATION
  Report Type: Report from Study
  Country: DE (occurrence: DE)
  Receive Date: 20160812
  Receipt Date: 20211126
  Transmission Date: 20220303
  Serious: Yes (Death, Hospitalization, Other)
  Sender: FDA-Public Use
  Company Number: PHHY2016DE101831

PATIENT
  Age: 79 Year
  Sex: Male
  Weight: 74 kg

DRUGS (13)
  1. EXJADE [Suspect]
     Active Substance: DEFERASIROX
     Indication: Myeloproliferative neoplasm
     Dosage: 1000 MG, 500 MG (2-0-0) DAILY WITHOUT CHANGES
     Route: 065
     Dates: start: 20150924
  2. EXJADE [Suspect]
     Active Substance: DEFERASIROX
     Indication: Primary myelofibrosis
     Dosage: UNK
     Route: 065
     Dates: start: 20160316, end: 20160721
  3. EXJADE [Suspect]
     Active Substance: DEFERASIROX
     Indication: Iron overload
  4. ASPIRIN [Concomitant]
     Active Substance: ASPIRIN
     Indication: Coronary artery disease
     Dosage: 100 MG, QD (0-1-0)
     Route: 065
  5. EZETIMIBE\SIMVASTATIN [Concomitant]
     Active Substance: EZETIMIBE\SIMVASTATIN
     Indication: Hypercholesterolaemia
     Dosage: 40 MG, QD (0-0-1)
     Route: 065
  6. .BETA.-SITOSTEROL [Concomitant]
     Active Substance: .BETA.-SITOSTEROL
     Indication: Hyperuricaemia
     Dosage: 10 MG, QD (0-0-1)
     Route: 065
  7. LOSARTAN AND HYDROCHLOROTHIAZIDE [Concomitant]
     Active Substance: HYDROCHLOROTHIAZIDE\LOSARTAN POTASSIUM
     Indication: Coronary artery disease
     Dosage: 12.5 MG, QD (1/2-0-0)
     Route: 065
  8. NEBIVOLOL [Concomitant]
     Active Substance: NEBIVOLOL
     Indication: Coronary artery disease
     Dosage: 2.5 MG, QD ( 1/2-0-0)
     Route: 065
  9. NEURO-B-FORTE [Concomitant]
     Indication: Prophylaxis
     Dosage: UNK (0-1-0)
     Route: 065
  10. PANTOPRAZOLE SODIUM [Concomitant]
     Active Substance: PANTOPRAZOLE SODIUM
     Indication: Prophylaxis
     Dosage: 40 MG, QD (1-0-0)
     Route: 065
  11. MAGNESIUM ASPARTATE\POTASSIUM ASPARTATE [Concomitant]
     Active Substance: MAGNESIUM ASPARTATE\POTASSIUM ASPARTATE
     Indication: Coronary artery disease
     Dosage: 1 DF, QD
     Route: 065
  12. ALLOPURINOL [Concomitant]
     Active Substance: ALLOPURINOL
     Indication: Hyperuricaemia
     Dosage: 300 MG, QD (0-0-1)
     Route: 065
  13. RUXOLITINIB [Concomitant]
     Active Substance: RUXOLITINIB
     Indication: Primary myelofibrosis
     Dosage: 10 MG, QD (1/2-0-0)
     Route: 065
     Dates: start: 20150129

REACTIONS (11)
  - Sepsis [Fatal]
  - Acute kidney injury [Fatal]
  - Blood creatinine increased [Fatal]
  - Cardiac failure [Fatal]
  - General physical condition abnormal [Fatal]
  - Haematoma infection [Not Recovered/Not Resolved]
  - Abscess rupture [Not Recovered/Not Resolved]
  - Abscess bacterial [Unknown]
  - Cellulitis [Not Recovered/Not Resolved]
  - Erythema [Unknown]
  - Skin reaction [Unknown]

NARRATIVE: CASE EVENT DATE: 20160427
